FAERS Safety Report 5426715-4 (Version None)
Quarter: 2007Q3

REPORT INFORMATION
  Report Type: 
  Country: None (occurrence: None)
  Receive Date: 20070731
  Receipt Date: 20070615
  Transmission Date: 20080115
  Serious: No
  Sender: FDA-Public Use
  Company Number: US200705000852

PATIENT
  Age: 58 Year
  Sex: Female
  Weight: 93.4 kg

DRUGS (2)
  1. BYETTA [Suspect]
     Indication: TYPE 2 DIABETES MELLITUS
     Dosage: 5 UG, 2/D, SUBCUTANES
     Route: 058
     Dates: start: 20070301
  2. BYETTA [Suspect]
     Dosage: 5 UG, 2/D, SUBCUTANEOUS
     Route: 058
     Dates: start: 20070301

REACTIONS (5)
  - FEELING JITTERY [None]
  - HYPOGLYCAEMIA [None]
  - NAUSEA [None]
  - POLYP COLORECTAL [None]
  - WEIGHT DECREASED [None]
